FAERS Safety Report 12757393 (Version 1)
Quarter: 2016Q3

REPORT INFORMATION
  Report Type: Spontaneous
  Country: US (occurrence: US)
  Receive Date: 20160919
  Receipt Date: 20160919
  Transmission Date: 20161109
  Serious: Yes (Other)
  Sender: FDA-Public Use
  Company Number: US-JNJFOC-20160908482

PATIENT
  Sex: Male

DRUGS (1)
  1. LISTERINE TOTAL CARE ZERO FRESHMINT [Suspect]
     Active Substance: SODIUM FLUORIDE
     Indication: DENTAL DISORDER PROPHYLAXIS
     Route: 048

REACTIONS (2)
  - Hypoaesthesia oral [Unknown]
  - Chemical burn of gastrointestinal tract [Unknown]
